FAERS Safety Report 6284456-8 (Version None)
Quarter: 2009Q3

REPORT INFORMATION
  Report Type: 
  Country: None (occurrence: None)
  Receive Date: 20090723
  Receipt Date: 20090716
  Transmission Date: 20100115
  Serious: No
  Sender: FDA-Public Use
  Company Number: C-09-0171

PATIENT
  Age: 74 Year
  Sex: Female
  Weight: 68.0396 kg

DRUGS (4)
  1. LACTULOSE [Suspect]
     Indication: CONSTIPATION
     Dosage: 3 TBSP IN EVENING  047
     Dates: start: 20090701
  2. CRESTOR [Concomitant]
  3. TOPROL-XL [Concomitant]
  4. BENICAR [Concomitant]

REACTIONS (2)
  - DRUG INEFFECTIVE [None]
  - PRODUCT QUALITY ISSUE [None]
